FAERS Safety Report 12660030 (Version 1)
Quarter: 2016Q3

REPORT INFORMATION
  Report Type: Spontaneous
  Country: US (occurrence: US)
  Receive Date: 20160817
  Receipt Date: 20160817
  Transmission Date: 20161109
  Serious: Yes (Other)
  Sender: FDA-Public Use
  Company Number: US-PFIZER INC-2016270889

PATIENT
  Age: 45 Year
  Sex: Female

DRUGS (8)
  1. CLOZAPINE. [Suspect]
     Active Substance: CLOZAPINE
     Indication: TARDIVE DYSKINESIA
     Dosage: 350 MG, DAILY (100 MG IN THE MORNING AND 250 MG AT BEDTIME)
  2. LITHIUM CARBONATE. [Concomitant]
     Active Substance: LITHIUM CARBONATE
     Dosage: 900 MG, EVERY NIGHT AT BEDTIME
  3. IBUPROFEN. [Suspect]
     Active Substance: IBUPROFEN
     Indication: PAIN
  4. CLOZAPINE. [Suspect]
     Active Substance: CLOZAPINE
     Dosage: 600 MG, DAILY (SLOWELY TITRATED)
  5. IBUPROFEN. [Suspect]
     Active Substance: IBUPROFEN
     Indication: MOVEMENT DISORDER
  6. CLOZAPINE. [Suspect]
     Active Substance: CLOZAPINE
     Dosage: 200 MG, DAILY
  7. IBUPROFEN. [Suspect]
     Active Substance: IBUPROFEN
     Indication: SCHIZOAFFECTIVE DISORDER
     Dosage: 600 MG, EVERY 4 HRS (AS NEEDED)
  8. CLONAZEPAM. [Suspect]
     Active Substance: CLONAZEPAM
     Dosage: 1 MG, 3X/DAY

REACTIONS (2)
  - Agranulocytosis [Unknown]
  - Toxicity to various agents [Unknown]
